FAERS Safety Report 15126206 (Version 1)
Quarter: 2018Q3

REPORT INFORMATION
  Report Type: Spontaneous
  Country: US (occurrence: US)
  Receive Date: 20180710
  Receipt Date: 20180710
  Transmission Date: 20181010
  Serious: No
  Sender: FDA-Public Use
  Company Number: US-BAYER-2018-122512

PATIENT
  Age: 87 Year
  Sex: Female

DRUGS (9)
  1. MIRALAX [Suspect]
     Active Substance: POLYETHYLENE GLYCOL 3350
     Indication: GASTROINTESTINAL DISORDER
     Dosage: 17G IN 8 OZ WATER TWICE DAILY DOSE
     Route: 048
     Dates: start: 201702
  2. VITAMIN C [ASCORBIC ACID] [Concomitant]
  3. STATIN [Concomitant]
     Active Substance: UNSPECIFIED INGREDIENT
  4. CRANBERRY. [Concomitant]
     Active Substance: CRANBERRY
  5. CLARITIN [Concomitant]
     Active Substance: LORATADINE
  6. COLACE [Concomitant]
     Active Substance: DOCUSATE SODIUM
  7. VITAMIN D [Suspect]
     Active Substance: CHOLECALCIFEROL
  8. CITRACAL MAXIMUM [Suspect]
     Active Substance: CALCIUM CITRATE\CHOLECALCIFEROL
     Indication: NUTRITIONAL SUPPLEMENTATION
     Dosage: 2 DF, QD
     Route: 048
     Dates: start: 201806
  9. CM3 [Concomitant]

REACTIONS (6)
  - Incorrect drug administration duration [Unknown]
  - Incorrect dosage administered [Unknown]
  - Diarrhoea [Not Recovered/Not Resolved]
  - Product prescribing issue [Unknown]
  - Extra dose administered [Unknown]
  - Product use issue [Unknown]

NARRATIVE: CASE EVENT DATE: 201802
